FAERS Safety Report 12917856 (Version 1)
Quarter: 2016Q4

REPORT INFORMATION
  Report Type: Spontaneous
  Country: US (occurrence: US)
  Receive Date: 20161107
  Receipt Date: 20161107
  Transmission Date: 20170207
  Serious: No
  Sender: FDA-Public Use
  Company Number: US-ASTRAZENECA-2016SF14223

PATIENT
  Age: 27487 Day
  Sex: Female
  Weight: 80.5 kg

DRUGS (1)
  1. FASLODEX [Suspect]
     Active Substance: FULVESTRANT
     Indication: BREAST CANCER
     Dosage: RECEIVED 250 MG INSTEAD OF 500 MG DOSE
     Route: 030

REACTIONS (4)
  - Injection site haemorrhage [Unknown]
  - Haemorrhage [Unknown]
  - Device issue [Unknown]
  - Incorrect dose administered [Unknown]

NARRATIVE: CASE EVENT DATE: 20161026
